FAERS Safety Report 25586624 (Version 1)
Quarter: 2025Q3

REPORT INFORMATION
  Report Type: Spontaneous
  Country: EU (occurrence: EU)
  Receive Date: 20250721
  Receipt Date: 20250721
  Transmission Date: 20251021
  Serious: Yes (Other)
  Sender: ROCHE
  Company Number: None

PATIENT
  Age: 74 Year
  Sex: Male

DRUGS (6)
  1. RITUXIMAB [Suspect]
     Active Substance: RITUXIMAB
     Indication: Mantle cell lymphoma
     Route: 065
     Dates: start: 202305, end: 202311
  2. IBRUTINIB [Suspect]
     Active Substance: IBRUTINIB
     Indication: Mantle cell lymphoma
     Route: 065
     Dates: start: 202311
  3. DOXORUBICIN [Suspect]
     Active Substance: DOXORUBICIN
     Indication: Mantle cell lymphoma
     Route: 065
     Dates: start: 202305, end: 202311
  4. PREDNISONE [Suspect]
     Active Substance: PREDNISONE
     Indication: Mantle cell lymphoma
     Route: 065
     Dates: start: 202305, end: 202311
  5. VINCRISTINE [Suspect]
     Active Substance: VINCRISTINE
     Indication: Mantle cell lymphoma
     Route: 065
     Dates: start: 202305, end: 202311
  6. CYCLOPHOSPHAMIDE [Suspect]
     Active Substance: CYCLOPHOSPHAMIDE
     Indication: Mantle cell lymphoma
     Route: 065
     Dates: start: 202305, end: 202311

REACTIONS (3)
  - Fatigue [Unknown]
  - B symptoms [Unknown]
  - Disease progression [Unknown]
